FAERS Safety Report 5727705-4 (Version None)
Quarter: 2008Q2

REPORT INFORMATION
  Report Type: 
  Country: None (occurrence: None)
  Receive Date: 20080501
  Receipt Date: 20070705
  Transmission Date: 20081010
  Serious: Yes (Other)
  Sender: FDA-Public Use
  Company Number: PHEH2007US09682

PATIENT
  Age: 54 Year
  Sex: Female

DRUGS (6)
  1. LOTREL [Suspect]
     Dosage: 5/10 MG, ORAL ; 10/20 MG, QD, ORAL
     Route: 048
  2. NEURONTIN [Concomitant]
  3. METFORMIN HCL [Concomitant]
  4. INSULIN (INSULIN) [Concomitant]
  5. LASIX [Concomitant]
  6. VYTORIN [Concomitant]

REACTIONS (1)
  - BLOOD PRESSURE INADEQUATELY CONTROLLED [None]
